FAERS Safety Report 19046766 (Version 3)
Quarter: 2021Q2

REPORT INFORMATION
  Report Type: Report from Study
  Country: FR (occurrence: FR)
  Receive Date: 20210322
  Receipt Date: 20210419
  Transmission Date: 20210717
  Serious: Yes (Hospitalization)
  Sender: FDA-Public Use
  Company Number: FR-JNJFOC-20210327093

PATIENT
  Age: 31 Year
  Sex: Male
  Weight: 94 kg

DRUGS (12)
  1. DOLIPRANE [Concomitant]
     Active Substance: ACETAMINOPHEN
     Indication: HEADACHE
     Route: 048
     Dates: start: 2019
  2. CITRATE DE BETAINE [Concomitant]
     Active Substance: BETAINE CITRATE
     Indication: ABDOMINAL PAIN
     Route: 048
     Dates: start: 20200104
  3. EBASTINE [Concomitant]
     Active Substance: EBASTINE
     Indication: SEASONAL ALLERGY
     Route: 048
     Dates: start: 20200422
  4. BEDELIX [Concomitant]
     Active Substance: MONTMORILLONITE
     Indication: ABDOMINAL PAIN
     Route: 048
     Dates: start: 20200902, end: 20200905
  5. SPASFON [PHLOROGLUCINOL;TRIMETHYLPHLOROGLUCINOL] [Concomitant]
     Active Substance: PHLOROGLUCINOL\1,3,5-TRIMETHOXYBENZENE
     Indication: ABDOMINAL PAIN
     Route: 048
     Dates: start: 20190830
  6. ACUPAN [Concomitant]
     Active Substance: NEFOPAM HYDROCHLORIDE
     Indication: ABDOMINAL PAIN
     Route: 048
     Dates: start: 20200126
  7. GUSELKUMAB [Suspect]
     Active Substance: GUSELKUMAB
     Indication: CROHN^S DISEASE
     Dosage: MOST RECENT DOSE BEFORE THE SAE 27?AUG?2020
     Route: 058
     Dates: start: 20190725, end: 20201217
  8. GUSELKUMAB [Suspect]
     Active Substance: GUSELKUMAB
  9. GAVISCON [ALGINIC ACID;ALUMINIUM HYDROXIDE GEL, DRIED;MAGNESIUM TRISIL [Concomitant]
     Active Substance: ALGINIC ACID\ALUMINUM HYDROXIDE\MAGNESIUM TRISILICATE
     Indication: ABDOMINAL PAIN
     Route: 048
     Dates: start: 20200203
  10. DOLIPRANE [Concomitant]
     Active Substance: ACETAMINOPHEN
     Indication: TOOTH EXTRACTION
     Route: 048
     Dates: start: 20200427
  11. ALLERGODIL [Concomitant]
     Active Substance: AZELASTINE
     Indication: HYPERSENSITIVITY
     Route: 045
     Dates: start: 20200827, end: 20200905
  12. PINAVERIUM [Concomitant]
     Active Substance: PINAVERIUM BROMIDE
     Indication: ABDOMINAL PAIN
     Route: 048
     Dates: start: 20200902, end: 20200905

REACTIONS (1)
  - Diverticulitis [Recovered/Resolved]

NARRATIVE: CASE EVENT DATE: 20200905
